FAERS Safety Report 4596937-3 (Version None)
Quarter: 2005Q1

REPORT INFORMATION
  Report Type: 
  Country: None (occurrence: None)
  Receive Date: 20050228
  Receipt Date: 20050212
  Transmission Date: 20050727
  Serious: Yes (Hospitalization, Other)
  Sender: FDA-Public Use
  Company Number: 2005019377

PATIENT
  Sex: Female

DRUGS (3)
  1. NEURONTIN [Suspect]
     Indication: FIBROMYALGIA
     Dosage: 300 MG (1 IN1 D), ORAL
     Route: 048
  2. VICODIN [Suspect]
     Indication: ILL-DEFINED DISORDER
     Dosage: 10/650 MG ( 1 IN 1 D), ORAL
     Route: 048
     Dates: start: 20040901
  3. OLANZAPINE/FLUOXETINE HYDROCHLORIDE (FLUOXETINE HYDROCHLORIDE, , OLANZ [Suspect]
     Indication: ILL-DEFINED DISORDER
     Dosage: 6/25 (1 IN 1 D), ORAL
     Route: 048
     Dates: start: 20040901

REACTIONS (11)
  - DYSPNOEA [None]
  - ELECTROPHORESIS PROTEIN ABNORMAL [None]
  - FAECAL OCCULT BLOOD POSITIVE [None]
  - FATIGUE [None]
  - HYPERCALCAEMIA [None]
  - HYPOTHYROIDISM [None]
  - IRRITABLE BOWEL SYNDROME [None]
  - PALPITATIONS [None]
  - PYREXIA [None]
  - RENAL FAILURE ACUTE [None]
  - SINUSITIS [None]
